FAERS Safety Report 25979174 (Version 1)
Quarter: 2025Q4

REPORT INFORMATION
  Report Type: Spontaneous
  Country: US (occurrence: None)
  Receive Date: 20251030
  Receipt Date: 20251030
  Transmission Date: 20260118
  Serious: Yes (Death)
  Sender: FDA-CTU
  Company Number: None

PATIENT
  Age: 68 Year
  Sex: Male
  Weight: 61 kg

DRUGS (2)
  1. HEPARIN CALCIUM [Suspect]
     Active Substance: HEPARIN CALCIUM
  2. LINEZOLID [Suspect]
     Active Substance: LINEZOLID

REACTIONS (4)
  - Thrombocytopenia [None]
  - Acute myocardial infarction [None]
  - Osteomyelitis [None]
  - Respiratory failure [None]

NARRATIVE: CASE EVENT DATE: 20250518
